FAERS Safety Report 8883132 (Version 1)
Quarter: 2012Q4

REPORT INFORMATION
  Report Type: Report from Study
  Country: US (occurrence: US)
  Receive Date: 20121102
  Receipt Date: 20121102
  Transmission Date: 20130627
  Serious: Yes (Hospitalization)
  Sender: FDA-Public Use
  Company Number: US-ROCHE-1074812

PATIENT
  Age: 58 None
  Sex: Female
  Weight: 88.53 kg

DRUGS (8)
  1. OMALIZUMAB [Suspect]
     Indication: ASTHMA
     Route: 058
     Dates: start: 20120417, end: 20120927
  2. DULERA [Concomitant]
     Indication: ASTHMA
     Route: 055
  3. SINGULAIR [Concomitant]
     Indication: ASTHMA
     Route: 048
  4. PREDNISONE [Concomitant]
     Indication: ASTHMA
     Route: 048
  5. ALLEGRA [Concomitant]
     Indication: ASTHMA
     Route: 048
  6. ALBUTEROL INHALER [Concomitant]
     Indication: ASTHMA
     Dosage: Drug reported as Albuterol HFA
     Route: 055
  7. FLONASE [Concomitant]
     Route: 065
  8. OXYGEN THERAPY [Concomitant]
     Indication: ASTHMA
     Route: 045

REACTIONS (9)
  - Ear infection [Recovered/Resolved]
  - Seasonal allergy [Not Recovered/Not Resolved]
  - Rhinorrhoea [Not Recovered/Not Resolved]
  - Eye pruritus [Not Recovered/Not Resolved]
  - Ocular hyperaemia [Not Recovered/Not Resolved]
  - Asthma [Not Recovered/Not Resolved]
  - Influenza [Unknown]
  - Vomiting [Recovered/Resolved]
  - Ear pain [Recovered/Resolved]
